FAERS Safety Report 8143817-2 (Version None)
Quarter: 2012Q1

REPORT INFORMATION
  Report Type: 
  Country: None (occurrence: None)
  Receive Date: 20120217
  Receipt Date: 20120215
  Transmission Date: 20120608
  Serious: Yes (Other)
  Sender: FDA-Public Use
  Company Number: US-PFIZER INC-2012038117

PATIENT
  Sex: Male
  Weight: 69 kg

DRUGS (4)
  1. MELOXICAM [Suspect]
     Dosage: 7.5 MG, UNK
  2. LYRICA [Suspect]
     Indication: NEURALGIA
     Dosage: 150 MG, DAILY
     Route: 048
     Dates: start: 20120210, end: 20120212
  3. IBUPROFEN [Suspect]
     Dosage: UNK
  4. CARVEDILOL [Concomitant]
     Indication: HYPERTENSION
     Dosage: 6.25 MG, 2X/DAY

REACTIONS (5)
  - CEREBROVASCULAR ACCIDENT [None]
  - DIPLOPIA [None]
  - DIZZINESS [None]
  - VISUAL IMPAIRMENT [None]
  - GASTRITIS [None]
